FAERS Safety Report 6099723-0 (Version None)
Quarter: 2009Q1

REPORT INFORMATION
  Report Type: 
  Country: None (occurrence: None)
  Receive Date: 20090303
  Receipt Date: 20090219
  Transmission Date: 20090719
  Serious: Yes (Hospitalization, Other)
  Sender: FDA-Public Use
  Company Number: US-ROCHE-612116

PATIENT
  Sex: Female
  Weight: 72.6 kg

DRUGS (1)
  1. CAPECITABINE [Suspect]
     Indication: OVARIAN CANCER
     Dosage: DOSE: 2500 MG AM AND PM
     Route: 065
     Dates: start: 20090105, end: 20090128

REACTIONS (4)
  - DIARRHOEA [None]
  - FALL [None]
  - LOWER LIMB FRACTURE [None]
  - RENAL FAILURE [None]
